FAERS Safety Report 4851230-6 (Version None)
Quarter: 2005Q4

REPORT INFORMATION
  Report Type: 
  Country: None (occurrence: None)
  Receive Date: 20051208
  Receipt Date: 20051117
  Transmission Date: 20060501
  Serious: Yes (Hospitalization, Other)
  Sender: FDA-Public Use
  Company Number: US97040796A

PATIENT
  Sex: Male
  Weight: 52.1637 kg

DRUGS (13)
  1. HUMALOG [Suspect]
     Indication: DIABETES MELLITUS
     Dosage: 20 U, 2/D
     Dates: start: 19970101
  2. HUMULIN (HUMAN  ULTRALENTE) VIAL. [Suspect]
     Dosage: 60 U, 2/D
  3. HUMULIN (HUMAN INSULIN  REGULAR [Suspect]
     Indication: DIABETES MELLITUS
     Dosage: 35 U, DAILY (1/D), SUBCUTANEOUS
     Route: 058
     Dates: start: 19921201
  4. HUMULIN  ORIGIN NPH) VIAL [Suspect]
     Indication: DIABETES MELLITUS
     Dosage: 41 U, DAILY (1 /D), SUBCUTANEOUS
     Route: 058
     Dates: start: 19921201
  5. HUMULIN (HUMAN INSULIN (RDNA ORIGIN) LENTE) VIAL. [Suspect]
     Indication: DIABETES MELLITUS
     Dosage: 130 UNK, DAILY (1/D), SUBCUTANEOUS
     Route: 058
     Dates: start: 20000101
  6. SYNTHROID [Concomitant]
  7. PREDNISONE [Concomitant]
  8. METHOTREXATE [Concomitant]
  9. AZULFIDIEN (SULFASALAZINE) [Concomitant]
  10. CLINORIL [Concomitant]
  11. DYAZIDE [Concomitant]
  12. MEDROL [Concomitant]
  13. SYMLIN [Concomitant]

REACTIONS (22)
  - BLOOD GLUCOSE FLUCTUATION [None]
  - BLOOD GLUCOSE INCREASED [None]
  - BURNS SECOND DEGREE [None]
  - CARPAL TUNNEL SYNDROME [None]
  - CATARACT [None]
  - DYSPNOEA [None]
  - ERYTHEMA [None]
  - EYE INFECTION [None]
  - EYELID PTOSIS [None]
  - HEART RATE INCREASED [None]
  - HYPERHIDROSIS [None]
  - HYPOGLYCAEMIA [None]
  - LOCALISED INFECTION [None]
  - RASH [None]
  - RHEUMATOID ARTHRITIS [None]
  - ROTATOR CUFF SYNDROME [None]
  - SCAR [None]
  - SHOULDER PAIN [None]
  - SINUS DISORDER [None]
  - SLEEP APNOEA SYNDROME [None]
  - VERTEBRAL INJURY [None]
  - WEIGHT INCREASED [None]
